FAERS Safety Report 12490128 (Version 1)
Quarter: 2016Q2

REPORT INFORMATION
  Report Type: Spontaneous
  Country: US (occurrence: US)
  Receive Date: 20160622
  Receipt Date: 20160622
  Transmission Date: 20160815
  Serious: Yes (Hospitalization)
  Sender: FDA-Public Use
  Company Number: US-FRI-1000085503

PATIENT
  Age: 35 Year
  Sex: Male

DRUGS (7)
  1. VRAYLAR [Suspect]
     Active Substance: CARIPRAZINE
     Route: 048
  2. LORAZEPAM. [Concomitant]
     Active Substance: LORAZEPAM
     Route: 048
  3. PLASIL [Concomitant]
     Active Substance: METOCLOPRAMIDE HYDROCHLORIDE
  4. CYMBALTA [Concomitant]
     Active Substance: DULOXETINE HYDROCHLORIDE
     Route: 048
  5. LAMICTAL [Concomitant]
     Active Substance: LAMOTRIGINE
     Route: 048
  6. VRAYLAR [Suspect]
     Active Substance: CARIPRAZINE
     Route: 048
  7. VRAYLAR [Suspect]
     Active Substance: CARIPRAZINE
     Route: 048

REACTIONS (5)
  - Urinary retention [Unknown]
  - Seizure [Unknown]
  - Insomnia [Unknown]
  - Incontinence [Unknown]
  - Prosopagnosia [Unknown]
